FAERS Safety Report 23748715 (Version 2)
Quarter: 2024Q2

REPORT INFORMATION
  Report Type: Spontaneous
  Country: US (occurrence: US)
  Receive Date: 20240416
  Receipt Date: 20240529
  Transmission Date: 20240716
  Serious: No
  Sender: FDA-Public Use
  Company Number: US-MYLANLABS-2024M1029764

PATIENT
  Sex: Female
  Weight: 67.13 kg

DRUGS (1)
  1. GLATIRAMER ACETATE [Suspect]
     Active Substance: GLATIRAMER ACETATE
     Indication: Multiple sclerosis
     Dosage: 20 MILLIGRAM, QD (ONCE A DAY IN AM)
     Route: 065
     Dates: start: 20240223, end: 20240323

REACTIONS (2)
  - Drug intolerance [Unknown]
  - Product use complaint [Unknown]
